FAERS Safety Report 19877371 (Version 1)
Quarter: 2021Q3

REPORT INFORMATION
  Report Type: Spontaneous
  Country: US (occurrence: US)
  Receive Date: 20210923
  Receipt Date: 20210923
  Transmission Date: 20211014
  Serious: No
  Sender: FDA-Public Use
  Company Number: None

PATIENT
  Age: 67 Year
  Sex: Female

DRUGS (8)
  1. AMLODIPINE [Concomitant]
     Active Substance: AMLODIPINE BESYLATE
  2. METFORMIN [Concomitant]
     Active Substance: METFORMIN HYDROCHLORIDE
  3. AFINITOR [Suspect]
     Active Substance: EVEROLIMUS
     Indication: NEOPLASM MALIGNANT
     Route: 048
     Dates: start: 20200702, end: 20210915
  4. HYDROCHLOROTHIAZIDE 25MG [Concomitant]
     Active Substance: HYDROCHLOROTHIAZIDE
  5. ROSUVASTATIN 10MG [Concomitant]
     Active Substance: ROSUVASTATIN
  6. VITAMIN D 2000IU TABLETS [Concomitant]
  7. CALCIUM 600MG [Concomitant]
  8. FULVESTRANT 250MG/5ML [Concomitant]

REACTIONS (2)
  - Drug ineffective [None]
  - Disease progression [None]

NARRATIVE: CASE EVENT DATE: 20200915
